FAERS Safety Report 5106350-8 (Version None)
Quarter: 2006Q3

REPORT INFORMATION
  Report Type: 
  Country: None (occurrence: None)
  Receive Date: 20060731
  Receipt Date: 20060523
  Transmission Date: 20061208
  Serious: Yes (Other)
  Sender: FDA-Public Use
  Company Number: US-JNJFOC-20060405068

PATIENT
  Age: 38 Year
  Sex: Male

DRUGS (15)
  1. RISPERDAL [Suspect]
     Indication: DRUG USE FOR UNKNOWN INDICATION
     Dosage: 0.5 MG, 1 IN 1 DAY -SEE IMAGE
     Dates: start: 20001101, end: 20001101
  2. RISPERDAL [Suspect]
     Indication: DRUG USE FOR UNKNOWN INDICATION
     Dosage: 0.5 MG, 1 IN 1 DAY -SEE IMAGE
     Dates: start: 20001201, end: 20001203
  3. RISPERDAL [Suspect]
     Indication: DRUG USE FOR UNKNOWN INDICATION
     Dosage: 0.5 MG, 1 IN 1 DAY -SEE IMAGE
     Dates: start: 20001204, end: 20010104
  4. RISPERDAL [Suspect]
     Indication: DRUG USE FOR UNKNOWN INDICATION
     Dosage: 0.5 MG, 1 IN 1 DAY -SEE IMAGE
     Dates: start: 20010105, end: 20010208
  5. RISPERDAL [Suspect]
     Indication: DRUG USE FOR UNKNOWN INDICATION
     Dosage: 0.5 MG, 1 IN 1 DAY -SEE IMAGE
     Dates: start: 20010209, end: 20010325
  6. RISPERDAL [Suspect]
     Indication: DRUG USE FOR UNKNOWN INDICATION
     Dosage: 0.5 MG, 1 IN 1 DAY -SEE IMAGE
     Dates: start: 20010326, end: 20010405
  7. RISPERDAL [Suspect]
     Indication: DRUG USE FOR UNKNOWN INDICATION
     Dosage: 0.5 MG, 1 IN 1 DAY -SEE IMAGE
     Dates: start: 20010406
  8. SEROQUEL [Suspect]
     Indication: DRUG USE FOR UNKNOWN INDICATION
     Dates: start: 20010401
  9. BUSPAR [Concomitant]
  10. PAXIL [Concomitant]
  11. TRANXENE [Concomitant]
  12. AMBIEN [Concomitant]
  13. TOFRANIL [Concomitant]
  14. ZOLOFT [Concomitant]
  15. NEURONTIN [Concomitant]

REACTIONS (3)
  - AKATHISIA [None]
  - DIABETES MELLITUS NON-INSULIN-DEPENDENT [None]
  - SEDATION [None]
